FAERS Safety Report 17897236 (Version 1)
Quarter: 2020Q2

REPORT INFORMATION
  Report Type: Spontaneous
  Country: NZ (occurrence: NZ)
  Receive Date: 20200615
  Receipt Date: 20200615
  Transmission Date: 20200714
  Serious: Yes (Life-Threatening)
  Sender: FDA-Public Use
  Company Number: NZ-ELI_LILLY_AND_COMPANY-NZ202006004936

PATIENT
  Age: 70 Year
  Sex: Female

DRUGS (2)
  1. CARBOPLATIN. [Suspect]
     Active Substance: CARBOPLATIN
     Indication: MALIGNANT MEDIASTINAL NEOPLASM
     Dosage: UNK, UNKNOWN
     Route: 042
     Dates: start: 20190531, end: 20190621
  2. PEMETREXED. [Suspect]
     Active Substance: PEMETREXED
     Indication: MALIGNANT MEDIASTINAL NEOPLASM
     Dosage: UNK, UNKNOWN
     Dates: start: 20190531, end: 20190621

REACTIONS (2)
  - Toxic epidermal necrolysis [Unknown]
  - Off label use [Unknown]

NARRATIVE: CASE EVENT DATE: 20190531
